FAERS Safety Report 22387948 (Version 1)
Quarter: 2023Q2

REPORT INFORMATION
  Report Type: Spontaneous
  Country: US (occurrence: US)
  Receive Date: 20230531
  Receipt Date: 20230531
  Transmission Date: 20230721
  Serious: No
  Sender: FDA-Public Use
  Company Number: US-BAYER-2023A070362

PATIENT
  Age: 34 Year
  Sex: Female

DRUGS (2)
  1. LEVONORGESTREL [Suspect]
     Active Substance: LEVONORGESTREL
     Indication: Ingrown hair
     Route: 015
  2. LEVONORGESTREL [Suspect]
     Active Substance: LEVONORGESTREL
     Indication: Acne

REACTIONS (4)
  - Amenorrhoea [None]
  - Off label use [None]
  - Device use issue [None]
  - Therapeutic product effective for unapproved indication [None]
